FAERS Safety Report 9158792 (Version 1)
Quarter: 2013Q1

REPORT INFORMATION
  Report Type: Spontaneous
  Country: US (occurrence: US)
  Receive Date: 20130111
  Receipt Date: 20130111
  Transmission Date: 20140127
  Serious: Yes (Other)
  Sender: FDA-Public Use
  Company Number: US-RB-047773-12

PATIENT
  Sex: Male

DRUGS (3)
  1. SUBUTEX [Suspect]
     Indication: DRUG WITHDRAWAL SYNDROME
     Route: 064
     Dates: end: 201210
  2. SUBUTEX [Suspect]
     Dosage: DOSING DETAILS UNKNOWN
     Route: 063
     Dates: start: 201210
  3. METHADONE [Suspect]
     Indication: DRUG WITHDRAWAL SYNDROME
     Dosage: DOSING DETAILS UNKNOWN
     Route: 064

REACTIONS (4)
  - Foetal exposure during pregnancy [Recovered/Resolved]
  - Failure to thrive [Recovered/Resolved]
  - Pyloric stenosis [Recovered/Resolved]
  - Exposure during breast feeding [Not Recovered/Not Resolved]
